FAERS Safety Report 5938965-9 (Version None)
Quarter: 2008Q4

REPORT INFORMATION
  Report Type: 
  Country: None (occurrence: None)
  Receive Date: 20081103
  Receipt Date: 20081024
  Transmission Date: 20090506
  Serious: Yes (Other)
  Sender: FDA-Public Use
  Company Number: JP-ALLERGAN-0813520US

PATIENT
  Sex: Female

DRUGS (2)
  1. ALESION TABLET [Suspect]
     Indication: URTICARIA
     Dosage: 20 MG, QD
     Route: 048
     Dates: start: 20081021
  2. CELESTAMINE TAB [Suspect]
     Indication: URTICARIA
     Dosage: 0.75 MG, QD
     Route: 048
     Dates: start: 20081021

REACTIONS (3)
  - HYPERHIDROSIS [None]
  - LOSS OF CONSCIOUSNESS [None]
  - PALLOR [None]
